FAERS Safety Report 7253971-2 (Version None)
Quarter: 2011Q1

REPORT INFORMATION
  Report Type: 
  Country: None (occurrence: None)
  Receive Date: 20110129
  Receipt Date: 20100324
  Transmission Date: 20110831
  Serious: No
  Sender: FDA-Public Use
  Company Number: US-ABBOTT-10P-163-0635062-00

PATIENT
  Sex: Female
  Weight: 39.3 kg

DRUGS (12)
  1. TYLENOL-500 [Concomitant]
     Indication: HEADACHE
     Route: 048
     Dates: start: 20090615, end: 20090626
  2. IRON [Concomitant]
     Indication: ANAEMIA
     Route: 048
     Dates: start: 20090630, end: 20090830
  3. CAFFEINE [Concomitant]
     Dosage: 5 - 6 20 OZ
     Route: 048
     Dates: start: 20090106, end: 20090830
  4. ZOFRAN [Concomitant]
     Indication: NAUSEA
     Route: 048
     Dates: start: 20081212, end: 20090830
  5. TYLENOL-500 [Concomitant]
     Route: 048
     Dates: start: 20081127, end: 20090219
  6. ROBITUSSIN DM [Concomitant]
     Indication: PRODUCT USED FOR UNKNOWN INDICATION
     Dosage: 1 TABLESPOON
     Route: 048
     Dates: start: 20090622, end: 20090629
  7. HUMIRA [Suspect]
     Indication: ONYCHOMYCOSIS
     Dates: start: 20090811, end: 20090830
  8. COLACE [Concomitant]
     Indication: CONSTIPATION PROPHYLAXIS
     Route: 048
     Dates: start: 20081212, end: 20090830
  9. CAFFEINE [Concomitant]
     Indication: PRODUCT USED FOR UNKNOWN INDICATION
     Dosage: 1-2 20 OZ
     Route: 048
     Dates: start: 20081212, end: 20090105
  10. PRENATAL VITAMINS [Concomitant]
     Indication: PRODUCT USED FOR UNKNOWN INDICATION
     Route: 048
     Dates: start: 20090106, end: 20090830
  11. BENADRYL [Concomitant]
     Indication: PSORIASIS
     Route: 048
     Dates: start: 20090722, end: 20090830
  12. HUMIRA [Suspect]
     Indication: PSORIATIC ARTHROPATHY
     Dates: start: 20081212, end: 20090101

REACTIONS (7)
  - ANAEMIA [None]
  - HYPERTHERMIA [None]
  - RESPIRATORY TRACT INFECTION [None]
  - NAUSEA [None]
  - MUSCLE RUPTURE [None]
  - MUSCLE SPASMS [None]
  - FALSE LABOUR [None]
